FAERS Safety Report 20006576 (Version 1)
Quarter: 2021Q4

REPORT INFORMATION
  Report Type: Spontaneous
  Country: US (occurrence: US)
  Receive Date: 20211028
  Receipt Date: 20211028
  Transmission Date: 20220303
  Serious: Yes (Other)
  Sender: FDA-Public Use
  Company Number: US-SCALL-2021-US-023313

PATIENT
  Age: 67 Year
  Sex: Female
  Weight: 129.28 kg

DRUGS (2)
  1. COREG [Suspect]
     Active Substance: CARVEDILOL
     Indication: Product used for unknown indication
     Route: 065
  2. REVLIMID [Suspect]
     Active Substance: LENALIDOMIDE
     Dosage: 10 MILLIGRAM, 1 IN 1 D PO
     Dates: start: 20180223

REACTIONS (16)
  - Headache [Unknown]
  - Muscle disorder [Unknown]
  - Asthenia [Unknown]
  - Sinusitis [Unknown]
  - Nausea [Unknown]
  - Vomiting [Unknown]
  - Diarrhoea [Unknown]
  - Fatigue [Unknown]
  - Pruritus [Unknown]
  - Dizziness [Unknown]
  - Urticaria [Unknown]
  - Blood potassium decreased [Unknown]
  - Myocardial infarction [Unknown]
  - Arterial thrombosis [Unknown]
  - Product dose omission issue [Unknown]
  - Urinary tract infection [Unknown]
